FAERS Safety Report 8371256-8 (Version None)
Quarter: 2012Q2

REPORT INFORMATION
  Report Type: 
  Country: None (occurrence: None)
  Receive Date: 20120518
  Receipt Date: 20120514
  Transmission Date: 20120825
  Serious: No
  Sender: FDA-Public Use
  Company Number: US-PFIZER INC-2012117776

PATIENT
  Sex: Female

DRUGS (2)
  1. PERCOCET [Suspect]
     Dosage: UNK
  2. TOVIAZ [Suspect]
     Indication: POLLAKIURIA
     Dosage: UNK

REACTIONS (2)
  - SOMNOLENCE [None]
  - FATIGUE [None]
